FAERS Safety Report 7536992-1 (Version None)
Quarter: 2011Q2

REPORT INFORMATION
  Report Type: 
  Country: None (occurrence: None)
  Receive Date: 20110609
  Receipt Date: 20110602
  Transmission Date: 20111010
  Serious: Yes (Hospitalization)
  Sender: FDA-Public Use
  Company Number: PHHY2011NL33771

PATIENT
  Age: 70 Year
  Sex: Female

DRUGS (12)
  1. FOSINOPRIL SODIUM [Concomitant]
     Dosage: 20 MG, QD
  2. SIMVASTATIN [Concomitant]
     Dosage: 40 MG, QD
  3. MORPHINE [Concomitant]
     Dosage: 7.5 MG, PRN (6 DAILY DOSES 7.5 MG MAXIMUM)
  4. ONDANSETRON [Concomitant]
     Dosage: 4 MG, PRN (3 DAILY DOSES MAXIMUM)
  5. ENOXAPARIN [Concomitant]
     Route: 058
  6. INSULIN [Concomitant]
  7. PANTOPRAZOLE [Concomitant]
     Dosage: 40 MG, BID
  8. SOTALOL HCL [Suspect]
     Indication: ARRHYTHMIA
     Dosage: 1 DF, BID
     Route: 048
  9. ASPIRIN [Concomitant]
     Dosage: 80 MG, QD
  10. FUROSEMIDE [Concomitant]
     Dosage: 40 MG, QD
  11. ACETAMINOPHEN [Concomitant]
     Dosage: 1000 MG, QID
  12. NOVORAPID [Concomitant]

REACTIONS (4)
  - BLOOD POTASSIUM DECREASED [None]
  - ELECTROCARDIOGRAM QT PROLONGED [None]
  - CARDIAC ARREST [None]
  - VENTRICULAR FIBRILLATION [None]
